FAERS Safety Report 18748972 (Version 1)
Quarter: 2021Q1

REPORT INFORMATION
  Report Type: Spontaneous
  Country: NL (occurrence: NL)
  Receive Date: 20210115
  Receipt Date: 20210115
  Transmission Date: 20210419
  Serious: Yes (Hospitalization)
  Sender: FDA-Public Use
  Company Number: NL-ROCHE-2748861

PATIENT
  Age: 53 Year
  Sex: Female
  Weight: 71 kg

DRUGS (5)
  1. RIVAROXABAN [Concomitant]
     Active Substance: RIVAROXABAN
  2. PLANTAGO OVATA POWDER [Concomitant]
  3. HYDROXYZINE [Concomitant]
     Active Substance: HYDROXYZINE HYDROCHLORIDE
  4. PEGINTERFERON ALFA?2A. [Suspect]
     Active Substance: PEGINTERFERON ALFA-2A
     Indication: POLYCYTHAEMIA VERA
     Dosage: IN TOTAL 3 X 45 MICROGRAM PER MILLILITER?DATE OF MOST RECENT DOSE PRIOR TO EVENT: 15/OCT/2020
     Route: 065
     Dates: start: 20201002
  5. EXEMESTAN [Concomitant]
     Active Substance: EXEMESTANE

REACTIONS (4)
  - Traumatic renal injury [Recovered/Resolved]
  - Off label use [Unknown]
  - Urethral obstruction [Recovered/Resolved]
  - Intentional product use issue [Unknown]

NARRATIVE: CASE EVENT DATE: 20201020
